FAERS Safety Report 13284419 (Version 2)
Quarter: 2017Q1

REPORT INFORMATION
  Report Type: Spontaneous
  Country: JP (occurrence: JP)
  Receive Date: 20170301
  Receipt Date: 20170317
  Transmission Date: 20170428
  Serious: Yes (Other)
  Sender: FDA-Public Use
  Company Number: JP-ASTRAZENECA-2016SF31346

PATIENT
  Age: 29255 Day
  Sex: Female
  Weight: 45 kg

DRUGS (7)
  1. AMARYL [Concomitant]
     Active Substance: GLIMEPIRIDE
  2. VOLTAREN [Concomitant]
     Active Substance: DICLOFENAC SODIUM
  3. IRESSA [Suspect]
     Active Substance: GEFITINIB
     Indication: LUNG ADENOCARCINOMA
     Route: 048
     Dates: start: 20060406, end: 20111014
  4. CYTOTEC [Concomitant]
     Active Substance: MISOPROSTOL
     Dosage: 200.0MG UNKNOWN
  5. NORVASC [Concomitant]
     Active Substance: AMLODIPINE BESYLATE
  6. LIPOVAS [Concomitant]
     Active Substance: PRAVASTATIN SODIUM
  7. RHYTHMY [Concomitant]
     Active Substance: RILMAZAFONE HYDROCHLORIDE

REACTIONS (1)
  - Aspergilloma [Recovering/Resolving]

NARRATIVE: CASE EVENT DATE: 20110909
